FAERS Safety Report 9542651 (Version 1)
Quarter: 2013Q3

REPORT INFORMATION
  Report Type: Spontaneous
  Country: US (occurrence: US)
  Receive Date: 20130923
  Receipt Date: 20130923
  Transmission Date: 20140515
  Serious: No
  Sender: FDA-Public Use
  Company Number: US-PFIZER INC-2013268815

PATIENT
  Age: 54 Year
  Sex: Female
  Weight: 91 kg

DRUGS (9)
  1. XANAX [Suspect]
     Indication: ANXIETY
     Dosage: 0.25 MG, 3X/DAY
     Route: 048
  2. PRINIVIL [Concomitant]
     Indication: HYPERTENSION
     Dosage: UNK
  3. CYMBALTA [Concomitant]
     Dosage: UNK
  4. AMBIEN CR [Concomitant]
     Dosage: UNK
  5. LYRICA [Concomitant]
     Dosage: UNK
  6. GLIPIZIDE [Concomitant]
     Indication: DIABETES MELLITUS
     Dosage: UNK
  7. HYDROCODONE [Concomitant]
     Dosage: UNK
  8. VICODIN [Concomitant]
     Dosage: UNK
  9. ACTOS [Concomitant]
     Indication: DIABETES MELLITUS
     Dosage: UNK

REACTIONS (2)
  - Vitamin B1 decreased [Unknown]
  - Vitamin B12 decreased [Unknown]
